FAERS Safety Report 23173050 (Version 2)
Quarter: 2023Q4

REPORT INFORMATION
  Report Type: Spontaneous
  Country: JP (occurrence: JP)
  Receive Date: 20231110
  Receipt Date: 20231116
  Transmission Date: 20240109
  Serious: Yes (Congenital Anomaly, Other)
  Sender: FDA-Public Use
  Company Number: JP-MALLINCKRODT-MNK202305604

PATIENT
  Sex: Female

DRUGS (1)
  1. NITRIC OXIDE [Suspect]
     Active Substance: NITRIC OXIDE
     Indication: Neonatal pulmonary hypertension
     Dosage: UNKNOWN
     Route: 055

REACTIONS (10)
  - Cataract congenital [Unknown]
  - Persistent foetal circulation [Unknown]
  - Congenital cystic kidney disease [Unknown]
  - Pulmonary haemorrhage [Unknown]
  - Acidosis [Unknown]
  - Aortic aneurysm [Unknown]
  - Kidney enlargement [Unknown]
  - Developmental delay [Unknown]
  - Pearson^s syndrome [Unknown]
  - Product use in unapproved indication [Unknown]
